FAERS Safety Report 5926681-9 (Version None)
Quarter: 2008Q4

REPORT INFORMATION
  Report Type: 
  Country: None (occurrence: None)
  Receive Date: 20081017
  Receipt Date: 20080822
  Transmission Date: 20090506
  Serious: Yes (Other)
  Sender: FDA-Public Use
  Company Number: 20097

PATIENT
  Age: 64 Year
  Sex: Female

DRUGS (7)
  1. PAMIDRONATE DISODIUM [Suspect]
     Dates: start: 20040101
  2. RECLAST [Suspect]
     Indication: OSTEOPOROSIS
     Dates: start: 20080218
  3. CLOPIDOGREL HYDROGEN SULPHATE [Concomitant]
  4. DILTIAZEM HCL [Concomitant]
  5. ISOSORBIDE MONONITRATE [Concomitant]
  6. OMEPRAZOLE [Concomitant]
  7. SIMVASTATIN [Concomitant]

REACTIONS (4)
  - OSTEONECROSIS [None]
  - PAIN IN JAW [None]
  - SWELLING [None]
  - TOOTH EXTRACTION [None]
